FAERS Safety Report 6153867-3 (Version None)
Quarter: 2009Q2

REPORT INFORMATION
  Report Type: 
  Country: None (occurrence: None)
  Receive Date: 20090414
  Receipt Date: 20090407
  Transmission Date: 20091009
  Serious: Yes (Hospitalization, Disabling, Other)
  Sender: FDA-Public Use
  Company Number: US-JNJFOC-20080600338

PATIENT
  Sex: Female
  Weight: 56.25 kg

DRUGS (4)
  1. FENTANYL TRANSDERMAL SYSTEM [Suspect]
     Route: 062
  2. FENTANYL TRANSDERMAL SYSTEM [Suspect]
     Route: 062
  3. FENTANYL TRANSDERMAL SYSTEM [Suspect]
     Indication: POLYNEUROPATHY
     Route: 062
  4. ADRIAMYCIN RDF [Suspect]
     Indication: NEOPLASM MALIGNANT
     Route: 042

REACTIONS (10)
  - ANOREXIA [None]
  - CACHEXIA [None]
  - CARDIOMYOPATHY [None]
  - DEPRESSION [None]
  - EJECTION FRACTION DECREASED [None]
  - HOSTILITY [None]
  - IMPLANTABLE DEFIBRILLATOR INSERTION [None]
  - MALNUTRITION [None]
  - SUICIDAL IDEATION [None]
  - WEIGHT DECREASED [None]
